FAERS Safety Report 8033765-0 (Version None)
Quarter: 2012Q1

REPORT INFORMATION
  Report Type: 
  Country: None (occurrence: None)
  Receive Date: 20120110
  Receipt Date: 20120105
  Transmission Date: 20120608
  Serious: No
  Sender: FDA-Public Use
  Company Number: US-PFIZER INC-2012004437

PATIENT
  Sex: Male

DRUGS (10)
  1. TRICOR [Concomitant]
     Dosage: 48 MG, UNK
     Route: 048
  2. FUROSEMIDE [Concomitant]
     Dosage: 20 MG, UNK
     Route: 048
  3. SUTENT [Suspect]
     Dosage: 50 MG, 1X/DAY, 4 WEEKS ON/2 WEEKS OFF
     Route: 048
  4. LIPITOR [Concomitant]
     Dosage: 10 MG, UNK
     Route: 048
  5. JANUVIA [Concomitant]
     Dosage: 25 MG, UNK
     Route: 048
  6. ACTOS [Concomitant]
     Dosage: 30 MG, UNK
     Route: 048
  7. SUTENT [Suspect]
     Dosage: 37.5 MG, 1X/DAY
     Route: 048
  8. SEVELAMER CARBONATE [Concomitant]
     Dosage: 800 MG, UNK
     Route: 048
  9. GLIPIZIDE [Concomitant]
     Dosage: 5 MG, UNK
     Route: 048
  10. PHOSLO [Concomitant]
     Dosage: 667 MG, UNK
     Route: 048

REACTIONS (2)
  - DIARRHOEA [None]
  - PAIN IN EXTREMITY [None]
